FAERS Safety Report 10050994 (Version 1)
Quarter: 2014Q2

REPORT INFORMATION
  Report Type: Spontaneous
  Country: US (occurrence: US)
  Receive Date: 20140401
  Receipt Date: 20140401
  Transmission Date: 20141212
  Serious: Yes (Hospitalization, Other)
  Sender: FDA-Public Use
  Company Number: US-CUBIST PHARMACEUTICAL, INC.-2014CBST000476

PATIENT
  Sex: 0

DRUGS (5)
  1. CUBICIN [Suspect]
     Indication: MUSCULOSKELETAL PAIN
     Dosage: UNK, UNK UNK
     Route: 042
  2. CUBICIN [Suspect]
     Indication: BACTERIAL INFECTION
  3. VANCOMYCIN [Suspect]
     Indication: PERIRECTAL ABSCESS
     Dosage: UNK UNK, UNK
     Route: 042
  4. CIPROFLOXACIN [Suspect]
     Indication: BACTERIAL INFECTION
     Dosage: UNK, UNK
     Route: 042
  5. FLAGYL                             /00012501/ [Concomitant]
     Indication: BACTERIAL INFECTION
     Dosage: UNK, UNK
     Route: 042

REACTIONS (2)
  - Perirectal abscess [Recovering/Resolving]
  - Necrotising fasciitis [Recovering/Resolving]
